FAERS Safety Report 5754005-9 (Version None)
Quarter: 2008Q2

REPORT INFORMATION
  Report Type: 
  Country: None (occurrence: None)
  Receive Date: 20080527
  Receipt Date: 20080527
  Transmission Date: 20081010
  Serious: Yes (Life-Threatening, Other)
  Sender: FDA-Public Use
  Company Number: None

PATIENT
  Age: 33 Year
  Sex: Female
  Weight: 58.9676 kg

DRUGS (1)
  1. ZOLPIDEM [Suspect]
     Indication: INSOMNIA
     Dosage: 1 TABLET EVERY NIGHT
     Dates: start: 20071230, end: 20080412

REACTIONS (3)
  - AMNESIA [None]
  - SLEEP-RELATED EATING DISORDER [None]
  - SOMNAMBULISM [None]
